FAERS Safety Report 14583591 (Version 1)
Quarter: 2018Q1

REPORT INFORMATION
  Report Type: Spontaneous
  Country: DE (occurrence: DE)
  Receive Date: 20180228
  Receipt Date: 20180228
  Transmission Date: 20180509
  Serious: Yes (Other)
  Sender: FDA-Public Use
  Company Number: DE-OTSUKA-DJ20105043

PATIENT

DRUGS (1)
  1. ABILIFY [Suspect]
     Active Substance: ARIPIPRAZOLE
     Indication: AGITATION
     Route: 048
     Dates: start: 20050116

REACTIONS (2)
  - Raynaud^s phenomenon [Not Recovered/Not Resolved]
  - Antiphospholipid syndrome [Unknown]

NARRATIVE: CASE EVENT DATE: 200908
